FAERS Safety Report 11876410 (Version 2)
Quarter: 2016Q1

REPORT INFORMATION
  Report Type: Report from Study
  Country: JP (occurrence: JP)
  Receive Date: 20151229
  Receipt Date: 20160301
  Transmission Date: 20160526
  Serious: Yes (Other)
  Sender: FDA-Public Use
  Company Number: JP-GLAXOSMITHKLINE-A201007037

PATIENT
  Age: 43 Year
  Sex: Male
  Weight: 76 kg

DRUGS (14)
  1. LAMOTRIGINE. [Suspect]
     Active Substance: LAMOTRIGINE
     Dosage: 50 MG, BID
     Route: 048
     Dates: start: 20090328, end: 20090410
  2. LAMOTRIGINE. [Suspect]
     Active Substance: LAMOTRIGINE
     Dosage: 75 MG, BID
     Route: 048
     Dates: start: 20090425, end: 20090506
  3. LAMOTRIGINE. [Suspect]
     Active Substance: LAMOTRIGINE
     Dosage: 50 MG, BID
     Route: 048
     Dates: start: 20090507, end: 20090706
  4. LAMOTRIGINE. [Suspect]
     Active Substance: LAMOTRIGINE
     Indication: TONIC CONVULSION
     Dosage: 25 MG, QOD
     Route: 048
     Dates: start: 20090131, end: 20090213
  5. LAMOTRIGINE. [Suspect]
     Active Substance: LAMOTRIGINE
     Dosage: 25 MG, BID
     Route: 048
     Dates: start: 20090707, end: 20090714
  6. LAMOTRIGINE. [Suspect]
     Active Substance: LAMOTRIGINE
     Dosage: 25 MG, BID
     Route: 048
     Dates: start: 20090228, end: 20090327
  7. LAMOTRIGINE. [Suspect]
     Active Substance: LAMOTRIGINE
     Dosage: 25 MG, QD
     Route: 048
     Dates: start: 20090715, end: 20090722
  8. LAMOTRIGINE. [Suspect]
     Active Substance: LAMOTRIGINE
     Dosage: 25 MG, QD
     Route: 048
     Dates: start: 20090214, end: 20090227
  9. SODIUM VALPROATE [Concomitant]
     Active Substance: VALPROATE SODIUM
     Indication: TONIC CONVULSION
     Dosage: 600 MG, 1D
     Route: 048
  10. TOPIRAMATE. [Concomitant]
     Active Substance: TOPIRAMATE
     Indication: TONIC CONVULSION
     Dosage: 150 MG, 1D
     Route: 048
  11. CARBAMAZEPINE. [Concomitant]
     Active Substance: CARBAMAZEPINE
     Indication: TONIC CONVULSION
     Dosage: 800 MG, 1D
     Route: 048
  12. LAMOTRIGINE. [Suspect]
     Active Substance: LAMOTRIGINE
     Dosage: 62.5 MG, BID
     Route: 048
     Dates: start: 20090411, end: 20090424
  13. PHENOBAL [Concomitant]
     Active Substance: PHENOBARBITAL
     Indication: TONIC CONVULSION
     Dosage: 60 MG, 1D
     Route: 048
  14. MYSTAN [Concomitant]
     Active Substance: CLOBAZAM
     Indication: TONIC CONVULSION
     Dosage: 25 MG, 1D
     Route: 048

REACTIONS (1)
  - Asterixis [Recovered/Resolved]

NARRATIVE: CASE EVENT DATE: 20090427
